FAERS Safety Report 5911820-6 (Version None)
Quarter: 2008Q4

REPORT INFORMATION
  Report Type: 
  Country: None (occurrence: None)
  Receive Date: 20081008
  Receipt Date: 20080926
  Transmission Date: 20090506
  Serious: Yes (Death)
  Sender: FDA-Public Use
  Company Number: US-BAYER-200710909BWH

PATIENT
  Age: 67 Year
  Sex: Female

DRUGS (6)
  1. NEXAVAR [Suspect]
     Indication: THYROID CANCER
     Dosage: TOTAL DAILY DOSE: 800 MG  UNIT DOSE: 200 MG
     Route: 048
     Dates: start: 20070226, end: 20070310
  2. NEXAVAR [Suspect]
     Dosage: TOTAL DAILY DOSE: 400 MG  UNIT DOSE: 200 MG
     Route: 048
     Dates: start: 20080601, end: 20080828
  3. NEXAVAR [Suspect]
     Dosage: TOTAL DAILY DOSE: 400 MG  UNIT DOSE: 200 MG
     Route: 048
     Dates: start: 20070301, end: 20080601
  4. SYNTHROID [Concomitant]
  5. PAXIL [Concomitant]
  6. VALIUM [Concomitant]

REACTIONS (9)
  - ASTHENIA [None]
  - BLISTER [None]
  - CARDIAC FAILURE [None]
  - CARDIOMEGALY [None]
  - FATIGUE [None]
  - OEDEMA PERIPHERAL [None]
  - PAIN IN EXTREMITY [None]
  - RASH [None]
  - SOMNOLENCE [None]
